FAERS Safety Report 6652280-X (Version None)
Quarter: 2010Q1

REPORT INFORMATION
  Report Type: 
  Country: None (occurrence: None)
  Receive Date: 20100323
  Receipt Date: 20100308
  Transmission Date: 20100710
  Serious: Yes (Other)
  Sender: FDA-Public Use
  Company Number: 009198

PATIENT
  Age: 41 Year
  Sex: Male

DRUGS (6)
  1. BUSULFEX [Suspect]
  2. PENTOSTATIN (PENTOSTATIN) [Concomitant]
  3. RITUXIMAB (RITUXIMAB) [Concomitant]
  4. SIROLIMUS (RAPAMUNE) [Concomitant]
  5. TACROLIMUS [Concomitant]
  6. PREDNISONE TAB [Concomitant]

REACTIONS (6)
  - ACUTE SINUSITIS [None]
  - DEHYDRATION [None]
  - DIARRHOEA [None]
  - H1N1 INFLUENZA [None]
  - INFLUENZA [None]
  - TONSILLAR INFLAMMATION [None]
